FAERS Safety Report 25500752 (Version 2)
Quarter: 2025Q3

REPORT INFORMATION
  Report Type: Spontaneous
  Country: US (occurrence: US)
  Receive Date: 20250701
  Receipt Date: 20250828
  Transmission Date: 20251021
  Serious: Yes (Death, Life-Threatening, Other)
  Sender: IOVANCE BIOTHERAPEUTICS
  Company Number: US-IOVANCE BIOTHERAPEUTICS, INC-2025IOV000104

PATIENT

DRUGS (6)
  1. AMTAGVI [Suspect]
     Active Substance: LIFILEUCEL
     Indication: Malignant melanoma
     Route: 042
     Dates: start: 20250605, end: 20250605
  2. ALDESLEUKIN [Suspect]
     Active Substance: ALDESLEUKIN
     Indication: Interleukin therapy
     Route: 042
     Dates: start: 20250606, end: 20250606
  3. ALDESLEUKIN [Suspect]
     Active Substance: ALDESLEUKIN
     Route: 042
     Dates: start: 20250606, end: 20250606
  4. ALDESLEUKIN [Suspect]
     Active Substance: ALDESLEUKIN
     Route: 042
     Dates: start: 20250607, end: 20250607
  5. CYCLOPHOSPHAMIDE [Suspect]
     Active Substance: CYCLOPHOSPHAMIDE
     Indication: Lymphodepletion
     Route: 042
     Dates: start: 20250528, end: 20250529
  6. FLUDARABINE [Suspect]
     Active Substance: FLUDARABINE PHOSPHATE
     Indication: Lymphodepletion
     Route: 042
     Dates: start: 20250530, end: 20250603

REACTIONS (11)
  - Death [Fatal]
  - Cerebral haemorrhage [Unknown]
  - Cerebral infarction [Unknown]
  - Cardiac arrest [Unknown]
  - Generalised tonic-clonic seizure [Unknown]
  - Unresponsive to stimuli [Unknown]
  - Mental impairment [Unknown]
  - Nervous system disorder [Unknown]
  - Atrial fibrillation [Unknown]
  - Encephalopathy [Unknown]
  - Confusional state [Unknown]

NARRATIVE: CASE EVENT DATE: 20250609
